FAERS Safety Report 8024767-9 (Version None)
Quarter: 2012Q1

REPORT INFORMATION
  Report Type: 
  Country: None (occurrence: None)
  Receive Date: 20120103
  Receipt Date: 20111219
  Transmission Date: 20120608
  Serious: Yes (Other)
  Sender: FDA-Public Use
  Company Number: MC201100644

PATIENT
  Weight: 7.6 kg

DRUGS (1)
  1. ANGIOMAX [Suspect]
     Indication: EXTRACORPOREAL MEMBRANE OXYGENATION
     Dosage: 0.03 TO 0.05 UG/KG/HOUR DEPENDING ON THE B LEEDING RATE, INTRAVENOUS
     Route: 042

REACTIONS (2)
  - THROMBOSIS IN DEVICE [None]
  - OFF LABEL USE [None]
